FAERS Safety Report 24743873 (Version 1)
Quarter: 2024Q4

REPORT INFORMATION
  Report Type: Spontaneous
  Country: US (occurrence: US)
  Receive Date: 20241217
  Receipt Date: 20241217
  Transmission Date: 20250115
  Serious: No
  Sender: PFIZER
  Company Number: US-PFIZER INC-202400102117

PATIENT
  Age: 82 Year
  Sex: Female

DRUGS (13)
  1. XELJANZ XR [Suspect]
     Active Substance: TOFACITINIB CITRATE
     Dosage: 11 MG
  2. ALPRAZOLAM [Concomitant]
     Active Substance: ALPRAZOLAM
  3. VITAMIN D3 [Concomitant]
     Active Substance: CHOLECALCIFEROL
  4. DICLOFENAC [Concomitant]
     Active Substance: DICLOFENAC
  5. FOLIC ACID [Concomitant]
     Active Substance: FOLIC ACID
  6. HYDROCORTISONE [Concomitant]
     Active Substance: HYDROCORTISONE
  7. HYDROXYCHLOROQUINE [Concomitant]
     Active Substance: HYDROXYCHLOROQUINE
  8. IBUPROFEN [Concomitant]
     Active Substance: IBUPROFEN
  9. METHOTREXATE SODIUM [Concomitant]
     Active Substance: METHOTREXATE SODIUM
  10. OMEPRAZOLE [Concomitant]
     Active Substance: OMEPRAZOLE
  11. PREDNISONE [Concomitant]
     Active Substance: PREDNISONE
  12. ALTACE [Concomitant]
     Active Substance: RAMIPRIL
  13. ZOCOR [Concomitant]
     Active Substance: SIMVASTATIN

REACTIONS (2)
  - Cerebral disorder [Unknown]
  - Cold-stimulus headache [Unknown]
